FAERS Safety Report 8494937-4 (Version None)
Quarter: 2012Q2

REPORT INFORMATION
  Report Type: 
  Country: None (occurrence: None)
  Receive Date: 20120405
  Receipt Date: 20100427
  Transmission Date: 20120825
  Serious: Yes (Other)
  Sender: FDA-Public Use
  Company Number: PHHY2010US26008

PATIENT
  Age: 65 Year
  Sex: Female
  Weight: 69 kg

DRUGS (11)
  1. VITAMINS (NO INGREDIENTS/SUBSTANCES) [Concomitant]
  2. VITAMIN E [Concomitant]
  3. RECLAST [Suspect]
     Indication: OSTEOPOROSIS
     Dosage: INFUSION
     Dates: start: 20100304
  4. CALCIUM CARBONATE [Concomitant]
  5. MULTIVITAMINS (ASCORBIC ACID, ERGOCALCIFEROL, FOLIC ACID, NICOTINAMIDE [Concomitant]
  6. FISH OIL (FISH OIL) [Concomitant]
  7. UNIVASC [Concomitant]
  8. MINERALS NOS (MINERALS NOS) [Concomitant]
  9. VITAMIN D [Concomitant]
  10. NAPROXEN [Concomitant]
  11. PRILOSEC [Concomitant]

REACTIONS (2)
  - PAIN IN JAW [None]
  - JOINT STIFFNESS [None]
